FAERS Safety Report 4355278-X (Version None)
Quarter: 2004Q2

REPORT INFORMATION
  Report Type: 
  Country: None (occurrence: None)
  Receive Date: 20040510
  Receipt Date: 20040428
  Transmission Date: 20050107
  Serious: Yes (Hospitalization, Other)
  Sender: FDA-Public Use
  Company Number: FR-BRISTOL-MYERS SQUIBB COMPANY-12574646

PATIENT
  Age: 9 Month
  Sex: Male

DRUGS (3)
  1. MUCOMYST [Suspect]
     Dosage: 100MG/5ML POWDER FOR ORAL SUSPENSION; 2 INTAKES PER DAY FOR 4 DAYS.
     Route: 048
     Dates: start: 20040313, end: 20040316
  2. VENTOLIN [Concomitant]
  3. FLIXOTIDE [Concomitant]

REACTIONS (4)
  - COUGH [None]
  - DYSPNOEA [None]
  - PYREXIA [None]
  - VOMITING [None]
